FAERS Safety Report 8894817 (Version 2)
Quarter: 2013Q1

REPORT INFORMATION
  Report Type: Spontaneous
  Country: US (occurrence: US)
  Receive Date: 20121108
  Receipt Date: 20130104
  Transmission Date: 20140127
  Serious: Yes (Other)
  Sender: FDA-Public Use
  Company Number: US-TEVA-368387USA

PATIENT
  Sex: Male
  Weight: 66.74 kg

DRUGS (1)
  1. QVAR [Suspect]
     Indication: ASTHMA
     Dosage: 160 MICROGRAM DAILY;
     Dates: start: 2011

REACTIONS (2)
  - Visual acuity reduced [Not Recovered/Not Resolved]
  - Intraocular pressure increased [Not Recovered/Not Resolved]
